FAERS Safety Report 23610669 (Version 3)
Quarter: 2025Q2

REPORT INFORMATION
  Report Type: Spontaneous
  Country: LV (occurrence: LV)
  Receive Date: 20240308
  Receipt Date: 20250529
  Transmission Date: 20250716
  Serious: Yes (Other)
  Sender: NOVARTIS
  Company Number: LV-002147023-NVSC2024LV049002

PATIENT
  Age: 37 Year
  Sex: Female
  Weight: 101 kg

DRUGS (2)
  1. KESIMPTA [Suspect]
     Active Substance: OFATUMUMAB
     Indication: Relapsing-remitting multiple sclerosis
     Route: 058
     Dates: start: 20220331, end: 20240128
  2. Vigantol [Concomitant]
     Indication: Product used for unknown indication
     Dosage: 10 DRP, QD (10 PIL)
     Route: 048
     Dates: start: 2019

REACTIONS (2)
  - Abortion spontaneous [Unknown]
  - Maternal exposure during pregnancy [Unknown]

NARRATIVE: CASE EVENT DATE: 20240304
